FAERS Safety Report 18757330 (Version 2)
Quarter: 2024Q1

REPORT INFORMATION
  Report Type: Spontaneous
  Country: US (occurrence: US)
  Receive Date: 20210119
  Receipt Date: 20240229
  Transmission Date: 20240410
  Serious: Yes (Hospitalization, Disabling, Other)
  Sender: FDA-Public Use
  Company Number: US-ELI_LILLY_AND_COMPANY-US202101004840

PATIENT
  Age: 58 Year
  Sex: Female

DRUGS (3)
  1. HUMALOG [Suspect]
     Active Substance: INSULIN LISPRO
     Indication: Type 2 diabetes mellitus
     Dosage: 19 U, PRN
     Route: 065
  2. TRULICITY [Suspect]
     Active Substance: DULAGLUTIDE
     Indication: Product used for unknown indication
     Dosage: UNK UNK, UNKNOWN
     Route: 065
  3. TOUJEO [Concomitant]
     Active Substance: INSULIN GLARGINE
     Indication: Type 2 diabetes mellitus
     Dosage: 42 U, DAILY

REACTIONS (7)
  - COVID-19 [Recovering/Resolving]
  - Loss of consciousness [Unknown]
  - Cardiac disorder [Unknown]
  - Cardiac failure congestive [Unknown]
  - Blood glucose increased [Unknown]
  - Somnolence [Unknown]
  - Feeling abnormal [Unknown]
